FAERS Safety Report 5726971-9 (Version None)
Quarter: 2008Q2

REPORT INFORMATION
  Report Type: 
  Country: None (occurrence: None)
  Receive Date: 20080501
  Receipt Date: 20070723
  Transmission Date: 20081010
  Serious: Yes (Other)
  Sender: FDA-Public Use
  Company Number: PHEH2007US07924

PATIENT
  Age: 69 Year
  Sex: Female
  Weight: 72.6 kg

DRUGS (2)
  1. DIOVAN HCT [Suspect]
     Indication: HYPERTENSION
     Dosage: ^80MG^, QD, ORAL ; 80MG, 1/2 TAB QOD, ORAL
     Route: 048
     Dates: end: 20070501
  2. DIOVAN HCT [Suspect]
     Indication: HYPERTENSION
     Dosage: ^80MG^, QD, ORAL ; 80MG, 1/2 TAB QOD, ORAL
     Route: 048
     Dates: start: 20070410

REACTIONS (6)
  - CONSTIPATION [None]
  - DIZZINESS [None]
  - FATIGUE [None]
  - HEADACHE [None]
  - HYPOTENSION [None]
  - NAUSEA [None]
